FAERS Safety Report 18459175 (Version 1)
Quarter: 2020Q4

REPORT INFORMATION
  Report Type: Spontaneous
  Country: US (occurrence: US)
  Receive Date: 20201103
  Receipt Date: 20201103
  Transmission Date: 20210114
  Serious: Yes (Death)
  Sender: FDA-Public Use
  Company Number: NVSC2020US294657

PATIENT
  Age: 44 Year
  Sex: Female

DRUGS (1)
  1. CARBOPLATIN. [Suspect]
     Active Substance: CARBOPLATIN
     Indication: SQUAMOUS CELL CARCINOMA OF THE CERVIX
     Dosage: UNK (ONE DOSE OF CARBOPLATIN AUC 2)
     Route: 065

REACTIONS (2)
  - Hepatitis B reactivation [Fatal]
  - Product use in unapproved indication [Unknown]
